FAERS Safety Report 9204392 (Version 2)
Quarter: 2013Q3

REPORT INFORMATION
  Report Type: Spontaneous
  Country: US (occurrence: None)
  Receive Date: 20130329
  Receipt Date: 20130809
  Transmission Date: 20140515
  Serious: Yes (Hospitalization)
  Sender: FDA-Public Use
  Company Number: UTC-030555

PATIENT
  Age: 46 Year
  Sex: Male
  Weight: 117.2 kg

DRUGS (13)
  1. REMODULIN [Suspect]
     Indication: PULMONARY ARTERIAL HYPERTENSION
     Dosage: 16.16 MG/DAY, INTRAVENOUS DRIP
     Route: 041
     Dates: start: 20120312
  2. ACETAMINOPHEN PARACETAMOL [Concomitant]
  3. ALLOPURINOL [Concomitant]
  4. AMBRISENTAN [Concomitant]
  5. GABAPENTIN [Concomitant]
  6. HYDROCODONE BITARTRATE AND ACETAMINOPHEN VICODIN [Concomitant]
  7. METOLAZONE [Concomitant]
  8. POTASSIUM CHLORIDE [Concomitant]
  9. SERTRALINE [Concomitant]
  10. SILDENAFIL [Concomitant]
  11. TRAZODONE [Concomitant]
  12. FUROSEMIDE [Concomitant]
  13. WARFARIN [Concomitant]

REACTIONS (18)
  - Headache [None]
  - Flushing [None]
  - Throat tightness [None]
  - Blood pressure decreased [None]
  - Dyspnoea [None]
  - Dysphagia [None]
  - Dysphagia [None]
  - Tachycardia [None]
  - Blood potassium decreased [None]
  - Blood glucose increased [None]
  - Blood lactic acid abnormal [None]
  - White blood cell count increased [None]
  - Device kink [None]
  - Incorrect dose administered [None]
  - Visual impairment [None]
  - Myocardial ischaemia [None]
  - Wrong technique in drug usage process [None]
  - Immediate post-injection reaction [None]
